FAERS Safety Report 12446215 (Version 1)
Quarter: 2016Q2

REPORT INFORMATION
  Report Type: Spontaneous
  Country: US (occurrence: US)
  Receive Date: 20160608
  Receipt Date: 20160608
  Transmission Date: 20160815
  Serious: No
  Sender: FDA-Public Use
  Company Number: US-BIOGEN-2016BI00224960

PATIENT

DRUGS (1)
  1. TYSABRI [Suspect]
     Active Substance: NATALIZUMAB
     Indication: MULTIPLE SCLEROSIS
     Route: 065

REACTIONS (7)
  - Vertigo [Unknown]
  - Hypoacusis [Unknown]
  - Bronchitis [Unknown]
  - Tinnitus [Unknown]
  - Multiple sclerosis [Unknown]
  - Asthma [Unknown]
  - Multiple sclerosis relapse [Unknown]
